FAERS Safety Report 4521115-3 (Version None)
Quarter: 2004Q4

REPORT INFORMATION
  Report Type: 
  Country: None (occurrence: None)
  Receive Date: 20041208
  Receipt Date: 20041112
  Transmission Date: 20050328
  Serious: Yes (Other)
  Sender: FDA-Public Use
  Company Number: US-ROCHE-386354

PATIENT
  Age: 13 Year
  Sex: Male

DRUGS (1)
  1. ACCUTANE [Suspect]
     Route: 048
     Dates: start: 20020615, end: 20021215

REACTIONS (4)
  - DISTURBANCE IN ATTENTION [None]
  - EDUCATIONAL PROBLEM [None]
  - EMOTIONAL DISORDER [None]
  - SCHIZOAFFECTIVE DISORDER [None]
